FAERS Safety Report 20335762 (Version 1)
Quarter: 2022Q1

REPORT INFORMATION
  Report Type: Report from Study
  Country: US (occurrence: None)
  Receive Date: 20220114
  Receipt Date: 20220114
  Transmission Date: 20220423
  Serious: Yes (Death)
  Sender: FDA-Public Use
  Company Number: 2022A017156

PATIENT
  Age: 23233 Day
  Sex: Female
  Weight: 75.3 kg

DRUGS (1)
  1. LYNPARZA [Suspect]
     Active Substance: OLAPARIB
     Indication: Ovarian cancer
     Route: 048
     Dates: start: 20211116

REACTIONS (1)
  - Death [Fatal]

NARRATIVE: CASE EVENT DATE: 20220106
